FAERS Safety Report 8910992 (Version 11)
Quarter: 2015Q3

REPORT INFORMATION
  Report Type: Spontaneous
  Country: US (occurrence: US)
  Receive Date: 20121116
  Receipt Date: 20150721
  Transmission Date: 20151125
  Serious: Yes (Hospitalization)
  Sender: FDA-Public Use
  Company Number: US-JNJFOC-20121011673

PATIENT
  Age: 4 Year
  Sex: Female
  Weight: 13 kg

DRUGS (6)
  1. CHILDRENS TYLENOL [Suspect]
     Active Substance: ACETAMINOPHEN
     Indication: UPPER RESPIRATORY TRACT INFECTION
     Dosage: 2-3 DOSES OF CHEWABLE TYLENOL ON 14-NOV-2007 AND 1 DOSE ON 15-NOV-2007.
     Route: 048
     Dates: start: 20071114
  2. EQUATE DAY TIME COLD AND FLU MULTI SYMPTOM RELIEF [Suspect]
     Active Substance: ACETAMINOPHEN\DEXTROMETHORPHAN HYDROBROMIDE\PHENYLEPHRINE HYDROCHLORIDE
     Indication: PYREXIA
     Route: 065
     Dates: start: 20071114
  3. CHILDRENS TYLENOL [Suspect]
     Active Substance: ACETAMINOPHEN
     Indication: PYREXIA
     Dosage: A TOTAL OF 5 DOSES (EACH DOSE AT AN INTERVAL OF 4-6 HOURS) OVER A SPAN OF 2 DAY
     Route: 048
     Dates: start: 20071114
  4. EQUATE DAY TIME COLD AND FLU MULTI SYMPTOM RELIEF [Suspect]
     Active Substance: ACETAMINOPHEN\DEXTROMETHORPHAN HYDROBROMIDE\PHENYLEPHRINE HYDROCHLORIDE
     Indication: UPPER RESPIRATORY TRACT INFECTION
     Route: 065
     Dates: start: 20071114
  5. CHILDRENS TYLENOL [Suspect]
     Active Substance: ACETAMINOPHEN
     Indication: LOWER RESPIRATORY TRACT INFECTION
     Dosage: A TOTAL OF 5 DOSES (EACH DOSE AT AN INTERVAL OF 4-6 HOURS) OVER A SPAN OF 2 DAY
     Route: 048
     Dates: start: 20071114
  6. CHILDRENS TYLENOL [Suspect]
     Active Substance: ACETAMINOPHEN
     Indication: PYREXIA
     Dosage: 2-3 DOSES OF CHEWABLE TYLENOL ON 14-NOV-2007 AND 1 DOSE ON 15-NOV-2007.
     Route: 048
     Dates: start: 20071114

REACTIONS (19)
  - Pleural effusion [None]
  - Hepatic steatosis [None]
  - Hepatomegaly [None]
  - Abdominal pain upper [None]
  - Renal failure [Unknown]
  - Pneumonia [None]
  - Hepatitis fulminant [None]
  - Metabolic encephalopathy [Recovered/Resolved]
  - Dehydration [None]
  - Coagulopathy [Recovered/Resolved]
  - Chest pain [None]
  - Abdominal pain [None]
  - Acute hepatic failure [Recovered/Resolved]
  - Liver transplant [None]
  - Viral infection [None]
  - Metabolic acidosis [Recovered/Resolved]
  - Sinusitis [None]
  - Hepatic necrosis [None]
  - Sepsis [None]

NARRATIVE: CASE EVENT DATE: 20071115
